FAERS Safety Report 4457362-9 (Version None)
Quarter: 2004Q3

REPORT INFORMATION
  Report Type: 
  Country: None (occurrence: None)
  Receive Date: 20040922
  Receipt Date: 20040913
  Transmission Date: 20050211
  Serious: Yes (Death, Hospitalization, Other)
  Sender: FDA-Public Use
  Company Number: US-JNJFOC-20040903573

PATIENT
  Age: 47 Year
  Sex: Female

DRUGS (4)
  1. ACETAMINOPHEN [Suspect]
     Indication: INTENTIONAL MISUSE
     Dosage: ORAL
     Route: 048
  2. ALPRAZOLAM [Suspect]
     Indication: INTENTIONAL MISUSE
     Dosage: ORAL
     Route: 048
  3. ACETAMINOPHEN WITH PROPOXYPHENE HCL TAB [Suspect]
     Indication: INTENTIONAL MISUSE
     Dosage: ORAL
     Route: 048
  4. ACETAMINOPHEN/PROPOXYPHENE (APOREX) [Suspect]
     Indication: INTENTIONAL MISUSE
     Dosage: ORAL
     Route: 048

REACTIONS (9)
  - ALANINE AMINOTRANSFERASE INCREASED [None]
  - ASPARTATE AMINOTRANSFERASE INCREASED [None]
  - COMA [None]
  - CONVULSION [None]
  - ELECTROCARDIOGRAM QT PROLONGED [None]
  - HYPOTENSION [None]
  - HYPOXIA [None]
  - MULTIPLE DRUG OVERDOSE [None]
  - VOMITING [None]
